FAERS Safety Report 5587208-7 (Version None)
Quarter: 2008Q1

REPORT INFORMATION
  Report Type: 
  Country: None (occurrence: None)
  Receive Date: 20080110
  Receipt Date: 20070412
  Transmission Date: 20080703
  Serious: No
  Sender: FDA-Public Use
  Company Number: US-BRISTOL-MYERS SQUIBB COMPANY-13746169

PATIENT
  Age: 63 Year
  Sex: Female
  Weight: 71 kg

DRUGS (3)
  1. CARDIOLITE INJ [Suspect]
  2. TOPROL-XL [Concomitant]
  3. HYDROCHLOROTHIAZIDE [Concomitant]

REACTIONS (3)
  - DYSGEUSIA [None]
  - THROAT IRRITATION [None]
  - TONGUE DISORDER [None]
